FAERS Safety Report 4929561-0 (Version None)
Quarter: 2006Q1

REPORT INFORMATION
  Report Type: 
  Country: None (occurrence: None)
  Receive Date: 20060223
  Receipt Date: 20060201
  Transmission Date: 20060701
  Serious: Yes (Other)
  Sender: FDA-Public Use
  Company Number: US200602000473

PATIENT
  Age: 64 Year
  Sex: Female

DRUGS (2)
  1. FORTEO [Suspect]
     Indication: OSTEOPOROSIS
     Dates: start: 20050801, end: 20060117
  2. FORTEO [Concomitant]

REACTIONS (11)
  - CHAPPED LIPS [None]
  - EPISTAXIS [None]
  - GENITAL PRURITUS FEMALE [None]
  - GLOSSITIS [None]
  - LIP HAEMORRHAGE [None]
  - NEOPLASM RECURRENCE [None]
  - OEDEMA MOUTH [None]
  - SKIN CANCER [None]
  - SWELLING FACE [None]
  - TONGUE OEDEMA [None]
  - VULVOVAGINAL DISCOMFORT [None]
